FAERS Safety Report 11185188 (Version 1)
Quarter: 2015Q2

REPORT INFORMATION
  Report Type: Spontaneous
  Country: US (occurrence: None)
  Receive Date: 20150611
  Receipt Date: 20150611
  Transmission Date: 20150821
  Serious: Yes (Disabling)
  Sender: FDA-Public Use
  Company Number: None

PATIENT
  Age: 32 Year
  Sex: Female
  Weight: 53.98 kg

DRUGS (2)
  1. TAMOXIFEN 20 MG MERK [Suspect]
     Active Substance: TAMOXIFEN
     Indication: BREAST CANCER
     Route: 048
     Dates: start: 20110105, end: 20150610
  2. VITAMIN D [Concomitant]
     Active Substance: CHOLECALCIFEROL

REACTIONS (2)
  - Hypotonia [None]
  - Motor dysfunction [None]

NARRATIVE: CASE EVENT DATE: 20140603
